FAERS Safety Report 8352759-9 (Version None)
Quarter: 2012Q2

REPORT INFORMATION
  Report Type: 
  Country: None (occurrence: None)
  Receive Date: 20120511
  Receipt Date: 20120503
  Transmission Date: 20120825
  Serious: Yes (Life-Threatening, Hospitalization)
  Sender: FDA-Public Use
  Company Number: FR-UCBSA-056801

PATIENT
  Age: 47 Year
  Sex: Male

DRUGS (8)
  1. EUPRESSYL [Concomitant]
     Indication: HYPERTENSION
     Route: 048
     Dates: start: 20120301
  2. CLAFORAN [Suspect]
     Route: 042
     Dates: start: 20120321, end: 20120408
  3. ESIDRIX [Suspect]
     Dosage: UNKNOWN DOSE
     Route: 048
     Dates: start: 20120301, end: 20120409
  4. RAMIPRIL [Suspect]
     Dosage: DAILY DOSE: 2.5 MG
     Route: 048
     Dates: start: 20120301, end: 20120409
  5. NICARDIPINE HYDROCHLORIDE [Concomitant]
     Indication: HYPERTENSION
     Dosage: UNKNOWN DOSE
     Dates: start: 20120301
  6. ATENOLOL [Concomitant]
     Indication: HYPERTENSION
     Route: 048
     Dates: start: 20120301
  7. CATAPRES [Concomitant]
     Indication: HYPERTENSION
     Dosage: UNKNOWN DOSE
     Dates: end: 20120301
  8. KEPPRA [Suspect]
     Dosage: UNKNOWN DOSE
     Route: 042
     Dates: start: 20120320, end: 20120406

REACTIONS (4)
  - AGRANULOCYTOSIS [None]
  - LEUKOPENIA [None]
  - ENTEROBACTER INFECTION [None]
  - NEUTROPENIA [None]
